FAERS Safety Report 7606747-8 (Version None)
Quarter: 2011Q3

REPORT INFORMATION
  Report Type: 
  Country: None (occurrence: None)
  Receive Date: 20110713
  Receipt Date: 20110706
  Transmission Date: 20111222
  Serious: Yes (Other)
  Sender: FDA-Public Use
  Company Number: IR-MERCK-1107USA00031

PATIENT
  Age: 56 Year
  Sex: Male

DRUGS (6)
  1. ZETIA [Suspect]
     Indication: HYPERLIPIDAEMIA
     Route: 048
  2. MYCOPHENOLATE MOFETIL [Concomitant]
     Route: 065
  3. CYCLOSPORINE [Suspect]
     Route: 065
  4. PREDNISOLONE [Concomitant]
     Route: 065
  5. ATORVASTATIN [Concomitant]
     Indication: HYPERLIPIDAEMIA
     Route: 065
  6. GEMFIBROZIL [Concomitant]
     Indication: HYPERLIPIDAEMIA
     Route: 065

REACTIONS (3)
  - KIDNEY TRANSPLANT REJECTION [None]
  - DRUG LEVEL DECREASED [None]
  - DRUG INTERACTION [None]
